FAERS Safety Report 9342471 (Version 3)
Quarter: 2013Q1

REPORT INFORMATION
  Report Type: Spontaneous
  Country: US (occurrence: None)
  Receive Date: 20111103
  Receipt Date: 20121128
  Transmission Date: 20140127
  Serious: Yes (Death)
  Sender: FDA-Public Use
  Company Number: 003-066

PATIENT
  Age: 54 Year
  Sex: Male

DRUGS (8)
  1. CROFAB (BTG INTERNATIONAL, INC) [Suspect]
     Indication: SNAKE BITE
     Dosage: 20 TOTAL VIAL
     Dates: start: 20111017, end: 20111020
  2. DIPHENHYDRAMINE [Concomitant]
  3. EPINEPHRINE [Concomitant]
  4. VASOPRESSORS [Concomitant]
  5. VERSED [Concomitant]
  6. DILAUDID [Concomitant]
  7. ANTIBIOTICS [Concomitant]
  8. DOPAMINE [Concomitant]

REACTIONS (21)
  - Sinus tachycardia [None]
  - Anuria [None]
  - Blood creatinine increased [None]
  - Electrocardiogram abnormal [None]
  - Haemorrhage [None]
  - Blood urea increased [None]
  - Blood magnesium decreased [None]
  - Blood creatine phosphokinase increased [None]
  - Haematocrit decreased [None]
  - Unresponsive to stimuli [None]
  - Haemoglobin abnormal [None]
  - Blood potassium decreased [None]
  - Blood albumin decreased [None]
  - Aspartate aminotransferase increased [None]
  - Alanine aminotransferase increased [None]
  - Blood pressure diastolic decreased [None]
  - Body temperature increased [None]
  - Activated partial thromboplastin time abnormal [None]
  - Multi-organ failure [None]
  - Renal failure [None]
  - Respiratory failure [None]
